FAERS Safety Report 6283101-5 (Version None)
Quarter: 2009Q3

REPORT INFORMATION
  Report Type: 
  Country: None (occurrence: None)
  Receive Date: 20090724
  Receipt Date: 20090717
  Transmission Date: 20100115
  Serious: Yes (Other)
  Sender: FDA-Public Use
  Company Number: A0797544A

PATIENT
  Age: 14 Year
  Sex: Female

DRUGS (2)
  1. LAMICTAL [Suspect]
     Route: 048
  2. NO CONCURRENT MEDICATION [Concomitant]

REACTIONS (4)
  - DRUG INEFFECTIVE [None]
  - PARANOIA [None]
  - PSYCHOTIC DISORDER [None]
  - SOCIAL AVOIDANT BEHAVIOUR [None]
